FAERS Safety Report 6717228-8 (Version None)
Quarter: 2010Q2

REPORT INFORMATION
  Report Type: 
  Country: None (occurrence: None)
  Receive Date: 20100510
  Receipt Date: 20100504
  Transmission Date: 20101027
  Serious: Yes (Death, Hospitalization, Other)
  Sender: FDA-Public Use
  Company Number: PHHY2009BR54820

PATIENT
  Age: 60 Year
  Sex: Male

DRUGS (2)
  1. FORASEQ [Suspect]
     Indication: PNEUMONIA
     Dosage: INHALATION OF 1 CAPSULE OF EACH SUBSTANCE TWICE A DAY
     Dates: start: 20060101
  2. FORASEQ [Suspect]
     Indication: NASOPHARYNGITIS

REACTIONS (7)
  - CARDIAC FAILURE CONGESTIVE [None]
  - CHEST DISCOMFORT [None]
  - GENERAL PHYSICAL CONDITION ABNORMAL [None]
  - PNEUMONIA [None]
  - PNEUMOTHORAX [None]
  - SEPSIS [None]
  - TREATMENT NONCOMPLIANCE [None]
